FAERS Safety Report 9943805 (Version 1)
Quarter: 2014Q1

REPORT INFORMATION
  Report Type: Report from Study
  Country: BR (occurrence: BR)
  Receive Date: 20140303
  Receipt Date: 20140303
  Transmission Date: 20141002
  Serious: Yes (Other)
  Sender: FDA-Public Use
  Company Number: BR-BAXTER-2014BAX011113

PATIENT
  Sex: 0

DRUGS (5)
  1. LACTATED RINGER^S SOLUTION [Suspect]
     Indication: FLUID REPLACEMENT
     Dosage: 30 ML.KG
     Route: 042
  2. MIDAZOLAM [Suspect]
     Indication: PREMEDICATION
     Route: 042
  3. BUPIVACAINE [Suspect]
     Indication: PRODUCT USED FOR UNKNOWN INDICATION
     Route: 065
  4. MORPHINE [Suspect]
     Indication: PRODUCT USED FOR UNKNOWN INDICATION
     Dosage: 100 UG
     Route: 065
  5. PROPOFOL [Suspect]
     Indication: SEDATION
     Route: 042

REACTIONS (1)
  - Blood disorder [Unknown]
